FAERS Safety Report 8004453-1 (Version None)
Quarter: 2011Q4

REPORT INFORMATION
  Report Type: 
  Country: None (occurrence: None)
  Receive Date: 20111221
  Receipt Date: 20111221
  Transmission Date: 20120403
  Serious: No
  Sender: FDA-Public Use
  Company Number: None

PATIENT
  Age: 69 Year
  Sex: Female
  Weight: 62.5964 kg

DRUGS (2)
  1. LISINOPRIL [Suspect]
     Indication: BLOOD PRESSURE
     Dosage: 10 MG ONCE A DAY
     Dates: start: 20110501
  2. SIMVASTATIN [Suspect]
     Indication: BLOOD CHOLESTEROL
     Dosage: 40 MG ONCE A DAY
     Dates: start: 20110401

REACTIONS (7)
  - STOMATITIS [None]
  - DROOLING [None]
  - DYSPNOEA [None]
  - SALIVARY HYPERSECRETION [None]
  - COUGH [None]
  - LIP SWELLING [None]
  - TRICHORRHEXIS [None]
